FAERS Safety Report 9478233 (Version 2)
Quarter: 2013Q4

REPORT INFORMATION
  Report Type: Spontaneous
  Country: FR (occurrence: None)
  Receive Date: 20130807
  Receipt Date: 20131120
  Transmission Date: 20140711
  Serious: Yes (Hospitalization, Other)
  Sender: FDA-Public Use
  Company Number: 2013037165

PATIENT
  Age: 9 Month
  Sex: Male

DRUGS (1)
  1. PRIVIGEN [Suspect]
     Indication: KAWASAKI^S DISEASE
     Dosage: 3 VIALS ADMINISTERED
     Dates: start: 20130716

REACTIONS (3)
  - Haemolytic anaemia [None]
  - Leukocytosis [None]
  - Off label use [None]
